FAERS Safety Report 8570321-X (Version None)
Quarter: 2012Q3

REPORT INFORMATION
  Report Type: 
  Country: None (occurrence: None)
  Receive Date: 20120803
  Receipt Date: 20120724
  Transmission Date: 20120928
  Serious: No
  Sender: FDA-Public Use
  Company Number: US-ABBOTT-12P-163-0959388-00

PATIENT
  Sex: Female

DRUGS (1)
  1. BIAXIN [Suspect]
     Indication: RESPIRATORY TRACT INFECTION

REACTIONS (1)
  - ORAL MUCOSAL BLISTERING [None]
